FAERS Safety Report 11713786 (Version 1)
Quarter: 2015Q4

REPORT INFORMATION
  Report Type: Spontaneous
  Country: US (occurrence: None)
  Receive Date: 20151106
  Receipt Date: 20151106
  Transmission Date: 20160304
  Serious: Yes (Hospitalization, Disabling, Other)
  Sender: FDA-Public Use
  Company Number: None

PATIENT
  Age: 24 Year
  Sex: Female
  Weight: 61.24 kg

DRUGS (7)
  1. AMETHIA (LEVONORGESTROL/ETHINYL ESTRADIOL) [Concomitant]
  2. CIPRO [Suspect]
     Active Substance: CIPROFLOXACIN HYDROCHLORIDE
     Indication: KIDNEY INFECTION
     Dosage: 1 PILL
     Route: 048
     Dates: start: 20150610, end: 20150615
  3. IBUPROFEN. [Concomitant]
     Active Substance: IBUPROFEN
  4. HYDROMORPHINE [Suspect]
     Active Substance: HYDROMORPHONE
     Indication: URINARY TRACT INFECTION
     Dosage: 1 SHOT, SHOULDER
     Dates: start: 20150610, end: 20150610
  5. TYLENOL [Concomitant]
     Active Substance: ACETAMINOPHEN
  6. SUMATRIPTAN  (GEN EQ: IMITREX) [Concomitant]
  7. HYDROMORPHINE [Suspect]
     Active Substance: HYDROMORPHONE
     Indication: KIDNEY INFECTION
     Dosage: 1 SHOT, SHOULDER
     Dates: start: 20150610, end: 20150610

REACTIONS (6)
  - Muscle strain [None]
  - Seizure [None]
  - Impaired driving ability [None]
  - Depression [None]
  - Impaired work ability [None]
  - Back pain [None]

NARRATIVE: CASE EVENT DATE: 20150617
